FAERS Safety Report 6043683-5 (Version None)
Quarter: 2009Q1

REPORT INFORMATION
  Report Type: 
  Country: None (occurrence: None)
  Receive Date: 20090120
  Receipt Date: 20090113
  Transmission Date: 20090719
  Serious: Yes (Death, Life-Threatening)
  Sender: FDA-Public Use
  Company Number: US-BRISTOL-MYERS SQUIBB COMPANY-14471957

PATIENT
  Age: 84 Year
  Sex: Female

DRUGS (2)
  1. HYDROXYUREA [Suspect]
     Indication: THROMBOCYTHAEMIA
     Dosage: INCREASED TO ORAL 1 G BID
     Route: 048
  2. ASPIRIN [Suspect]
     Indication: THROMBOCYTHAEMIA
     Route: 048

REACTIONS (3)
  - ADVERSE DRUG REACTION [None]
  - PANCYTOPENIA [None]
  - THROMBOCYTOPENIA [None]
